FAERS Safety Report 13627267 (Version 2)
Quarter: 2017Q3

REPORT INFORMATION
  Report Type: Spontaneous
  Country: US (occurrence: US)
  Receive Date: 20170607
  Receipt Date: 20170705
  Transmission Date: 20171127
  Serious: Yes (Other)
  Sender: FDA-Public Use
  Company Number: US-PFIZER INC-2017248209

PATIENT
  Age: 44 Year
  Sex: Female

DRUGS (4)
  1. DILANTIN [Suspect]
     Active Substance: PHENYTOIN
     Dosage: 360 MG, UNK
  2. DILANTIN [Suspect]
     Active Substance: PHENYTOIN
     Dosage: 350 MG, UNK
  3. DILANTIN [Suspect]
     Active Substance: PHENYTOIN
     Dosage: 130MG IN MORNING AND 200 IN EVENING
  4. DILANTIN [Suspect]
     Active Substance: PHENYTOIN
     Dosage: 330 MG, UNK

REACTIONS (5)
  - Anticonvulsant drug level increased [Not Recovered/Not Resolved]
  - Constipation [Unknown]
  - Seizure [Unknown]
  - Blood glucose abnormal [Unknown]
  - Anorexia and bulimia syndrome [Unknown]

NARRATIVE: CASE EVENT DATE: 201705
